FAERS Safety Report 5742904-3 (Version None)
Quarter: 2008Q2

REPORT INFORMATION
  Report Type: 
  Country: None (occurrence: None)
  Receive Date: 20080519
  Receipt Date: 20080514
  Transmission Date: 20081010
  Serious: Yes (Other)
  Sender: FDA-Public Use
  Company Number: US-ASTRAZENECA-2008AC01235

PATIENT
  Age: 55 Year
  Sex: Female

DRUGS (13)
  1. FOSCARNET [Suspect]
     Indication: CYTOMEGALOVIRUS VIRAEMIA
     Route: 042
  2. FOSCARNET [Suspect]
     Route: 042
  3. ESOMEPRAZOLE [Concomitant]
  4. GANCICLOVIR [Concomitant]
  5. MYCOPHENOLATE MOFETIL [Concomitant]
  6. PREDNISONE [Concomitant]
  7. TACROLIMUS [Concomitant]
  8. URSODIOL [Concomitant]
  9. MOXIFLOXACIN HCL [Concomitant]
     Indication: PROPHYLAXIS
  10. VORICONAZOLE [Concomitant]
     Indication: PROPHYLAXIS
  11. PENTAMIDINE [Concomitant]
     Indication: PROPHYLAXIS
  12. DILAUDID [Concomitant]
  13. ZOFRAN [Concomitant]

REACTIONS (1)
  - DYSTONIA [None]
